FAERS Safety Report 13159226 (Version 2)
Quarter: 2017Q2

REPORT INFORMATION
  Report Type: Spontaneous
  Country: GB (occurrence: ES)
  Receive Date: 20170127
  Receipt Date: 20170413
  Transmission Date: 20170830
  Serious: Yes (Hospitalization, Other)
  Sender: FDA-Public Use
  Company Number: GB-JNJFOC-20170123294

PATIENT
  Age: 73 Year
  Sex: Female
  Weight: 66.5 kg

DRUGS (1)
  1. RIVAROXABAN [Suspect]
     Active Substance: RIVAROXABAN
     Indication: ANTICOAGULANT THERAPY
     Route: 048
     Dates: start: 20150407

REACTIONS (2)
  - Cerebrovascular accident [Recovered/Resolved with Sequelae]
  - Cerebrovascular accident [Recovered/Resolved with Sequelae]

NARRATIVE: CASE EVENT DATE: 201611
